FAERS Safety Report 6015625-X (Version None)
Quarter: 2008Q4

REPORT INFORMATION
  Report Type: 
  Country: None (occurrence: None)
  Receive Date: 20081222
  Receipt Date: 20081119
  Transmission Date: 20090506
  Serious: No
  Sender: FDA-Public Use
  Company Number: US-BAYER-200814481BCC

PATIENT
  Age: 63 Year
  Sex: Female
  Weight: 41 kg

DRUGS (8)
  1. ALEVE (CAPLET) [Suspect]
     Indication: POSTOPERATIVE ANALGESIA
     Dosage: TOTAL DAILY DOSE: 220 MG  UNIT DOSE: 220 MG
     Route: 048
     Dates: start: 20081118
  2. MEDROL [Concomitant]
     Indication: DRUG USE FOR UNKNOWN INDICATION
  3. SYNTHROID [Concomitant]
     Indication: DRUG USE FOR UNKNOWN INDICATION
  4. ULTRAM [Concomitant]
     Indication: DRUG USE FOR UNKNOWN INDICATION
  5. PANCREATIC ENZYMES [Concomitant]
     Indication: DRUG USE FOR UNKNOWN INDICATION
  6. LYRICA [Concomitant]
     Indication: DRUG USE FOR UNKNOWN INDICATION
  7. SAM'S CLUB VITAMINS [Concomitant]
     Indication: DRUG USE FOR UNKNOWN INDICATION
  8. DARVOCET [Concomitant]
     Indication: DRUG USE FOR UNKNOWN INDICATION

REACTIONS (1)
  - TINNITUS [None]
